FAERS Safety Report 21208754 (Version 2)
Quarter: 2022Q3

REPORT INFORMATION
  Report Type: Report from Study
  Country: DE (occurrence: DE)
  Receive Date: 20220812
  Receipt Date: 20220825
  Transmission Date: 20221026
  Serious: No
  Sender: FDA-Public Use
  Company Number: DE-NOVARTISPH-NVSC2022DE182049

PATIENT
  Sex: Female
  Weight: 110 kg

DRUGS (6)
  1. KISQALI [Suspect]
     Active Substance: RIBOCICLIB
     Indication: Breast cancer
     Dosage: 600 MG (ADMINISTRATION SCHEME 21 DAYS INTAKE, 7 DAYS PAUSE)
     Route: 048
     Dates: start: 20210122, end: 20210729
  2. KISQALI [Suspect]
     Active Substance: RIBOCICLIB
     Indication: Hormone receptor negative HER2 positive breast cancer
  3. LETROZOLE [Suspect]
     Active Substance: LETROZOLE
     Indication: Breast cancer
     Dosage: 2.5 MG, QD
     Route: 048
     Dates: start: 20210122, end: 20210729
  4. LETROZOLE [Suspect]
     Active Substance: LETROZOLE
     Indication: Hormone receptor negative HER2 positive breast cancer
  5. AFINITOR [Suspect]
     Active Substance: EVEROLIMUS
     Indication: Breast cancer
     Dosage: 5 MG, QD
     Route: 048
     Dates: start: 20210805, end: 20210929
  6. AFINITOR [Suspect]
     Active Substance: EVEROLIMUS
     Indication: Hormone receptor negative HER2 positive breast cancer

REACTIONS (1)
  - Anaemia [Not Recovered/Not Resolved]

NARRATIVE: CASE EVENT DATE: 20220621
